FAERS Safety Report 4464125-7 (Version None)
Quarter: 2004Q4

REPORT INFORMATION
  Report Type: 
  Country: None (occurrence: None)
  Receive Date: 20041001
  Receipt Date: 20040922
  Transmission Date: 20050328
  Serious: Yes (Life-Threatening, Hospitalization)
  Sender: FDA-Public Use
  Company Number: DE-JNJFOC-20040907429

PATIENT
  Age: 67 Year
  Sex: Female

DRUGS (13)
  1. REMICADE [Suspect]
     Indication: RHEUMATOID ARTHRITIS
     Route: 042
  2. PANTOPRAZOLE SODIUM [Concomitant]
  3. DELIX [Concomitant]
  4. TOREM [Concomitant]
  5. PREDNISOLONE [Concomitant]
  6. ALLOPURINOL [Concomitant]
  7. DOGITOXIN [Concomitant]
  8. DURAGESIC [Concomitant]
  9. ETIDRONAT [Concomitant]
  10. FALITHROM [Concomitant]
  11. CYNT [Concomitant]
  12. NOVALGIN [Concomitant]
  13. FORTUM [Concomitant]

REACTIONS (5)
  - ENTEROBACTER PNEUMONIA [None]
  - LUNG INFECTION PSEUDOMONAL [None]
  - MULTI-ORGAN FAILURE [None]
  - PNEUMONIA ESCHERICHIA [None]
  - RESPIRATORY FAILURE [None]
